FAERS Safety Report 16650686 (Version 1)
Quarter: 2019Q3

REPORT INFORMATION
  Report Type: Other
  Country: FR (occurrence: FR)
  Receive Date: 20190731
  Receipt Date: 20190731
  Transmission Date: 20191004
  Serious: Yes (Life-Threatening, Hospitalization)
  Sender: FDA-Public Use
  Company Number: FR-EMCURE PHARMACEUTICALS LTD-2019-EPL-0475

PATIENT
  Age: 68 Year
  Sex: Male
  Weight: 74 kg

DRUGS (11)
  1. ALKERAN [Suspect]
     Active Substance: MELPHALAN
     Indication: AUTOLOGOUS HAEMATOPOIETIC STEM CELL TRANSPLANT
     Dosage: 140 MILLIGRAM/SQ. METER TOTAL
     Route: 042
     Dates: start: 20140929, end: 20140929
  2. DOXORUBICINE                       /00330901/ [Suspect]
     Active Substance: DOXORUBICIN
     Indication: PERIPHERAL T-CELL LYMPHOMA UNSPECIFIED
     Dosage: 50 MILLIGRAM/SQ. METER/14 DAY
     Route: 042
     Dates: start: 20140707, end: 20140903
  3. MABTHERA [Suspect]
     Active Substance: RITUXIMAB
     Indication: PERIPHERAL T-CELL LYMPHOMA UNSPECIFIED
     Dosage: 375 MILLIGRAM/14 DAY
     Route: 041
     Dates: start: 20140707, end: 20140903
  4. ETOPOSIDE. [Suspect]
     Active Substance: ETOPOSIDE
     Indication: BLADDER CANCER
     Dosage: 300 MILLIGRAM/SQ. METER/21 DAY
     Route: 042
     Dates: start: 20090817, end: 20091202
  5. BICNU [Suspect]
     Active Substance: CARMUSTINE
     Indication: AUTOLOGOUS HAEMATOPOIETIC STEM CELL TRANSPLANT
     Dosage: 300 MILLIGRAM/SQ. METER,POWDER AND SOLVENT FOR SOLUTION FOR INFUSION
     Route: 042
     Dates: start: 20140924, end: 20140924
  6. CYCLOPHOSPHAMIDE. [Suspect]
     Active Substance: CYCLOPHOSPHAMIDE
     Indication: PERIPHERAL T-CELL LYMPHOMA UNSPECIFIED
     Dosage: 750 MILLIGRAM/SQ. METER/14 DAY
     Route: 042
     Dates: start: 20140707, end: 20140903
  7. CISPLATINE [Suspect]
     Active Substance: CISPLATIN
     Indication: BLADDER CANCER
     Dosage: 40 MILLIGRAM/SQ. METER/1 WEEK
     Route: 042
     Dates: start: 20100216, end: 20100323
  8. VINCRISTINE [Suspect]
     Active Substance: VINCRISTINE
     Indication: PERIPHERAL T-CELL LYMPHOMA UNSPECIFIED
     Dosage: 1.4 MILLIGRAM/SQ. METER/14 DAY
     Route: 042
     Dates: start: 20140707, end: 20140903
  9. ETOPOPHOS [Suspect]
     Active Substance: ETOPOSIDE PHOSPHATE
     Indication: AUTOLOGOUS HAEMATOPOIETIC STEM CELL TRANSPLANT
     Dosage: 200 MILLIGRAM/SQ. METER/DAY,LYOPHILISATE FOR PARENTERAL USE
     Route: 042
     Dates: start: 20140925, end: 20140928
  10. CYTARABINE. [Suspect]
     Active Substance: CYTARABINE
     Indication: AUTOLOGOUS HAEMATOPOIETIC STEM CELL TRANSPLANT
     Dosage: 200 MILLIGRAM/SQ. METER/1 DAY
     Route: 042
     Dates: start: 20140925, end: 20140928
  11. CISPLATINE [Suspect]
     Active Substance: CISPLATIN
     Dosage: 80 MILLIGRAM/SQ. METER/21 DAY
     Route: 042
     Dates: start: 20090817, end: 20091130

REACTIONS (2)
  - Myelodysplastic syndrome [Not Recovered/Not Resolved]
  - Second primary malignancy [Not Recovered/Not Resolved]

NARRATIVE: CASE EVENT DATE: 20181221
